FAERS Safety Report 17722014 (Version 1)
Quarter: 2020Q2

REPORT INFORMATION
  Report Type: Spontaneous
  Country: US (occurrence: US)
  Receive Date: 20200429
  Receipt Date: 20200429
  Transmission Date: 20200714
  Serious: Yes (Hospitalization)
  Sender: FDA-Public Use
  Company Number: US-009507513-2004USA008223

PATIENT
  Age: 59 Year
  Sex: Female

DRUGS (3)
  1. INTRON A [Suspect]
     Active Substance: INTERFERON ALFA-2B
     Indication: ESSENTIAL THROMBOCYTHAEMIA
     Dosage: 0.3 MILLILITER, BIW; STRENGTH: 10 MMU/ML
     Route: 058
     Dates: start: 20191205
  2. INTRON A [Suspect]
     Active Substance: INTERFERON ALFA-2B
     Indication: AGRANULOCYTOSIS
  3. INTRON A [Suspect]
     Active Substance: INTERFERON ALFA-2B
     Indication: ANAEMIA

REACTIONS (2)
  - Product use in unapproved indication [Unknown]
  - Adverse event [Unknown]

NARRATIVE: CASE EVENT DATE: 20191205
